FAERS Safety Report 23250420 (Version 1)
Quarter: 2023Q4

REPORT INFORMATION
  Report Type: Spontaneous
  Country: US (occurrence: US)
  Receive Date: 20231201
  Receipt Date: 20231201
  Transmission Date: 20240110
  Serious: Yes (Other)
  Sender: FDA-Public Use
  Company Number: US-MYLANLABS-2023M1126294

PATIENT
  Age: 72 Year
  Sex: Male

DRUGS (20)
  1. TRIAMCINOLONE [Suspect]
     Active Substance: TRIAMCINOLONE
     Indication: Hypotony maculopathy
     Dosage: UNK, RECEIVED 40 MG/1.0 CC BILATERALLY AND FROM OCTOBER TO MID-DECEMBER 2020, RECEIVED ONE INJECTION
     Route: 031
     Dates: start: 202010
  2. TRIAMCINOLONE [Suspect]
     Active Substance: TRIAMCINOLONE
     Indication: Choroidal detachment
     Dosage: UNK, RECEIVED IN MAY AND JULY 2021; REPEAT
     Route: 031
     Dates: start: 202105
  3. TRIAMCINOLONE [Suspect]
     Active Substance: TRIAMCINOLONE
     Indication: Chorioretinal folds
  4. DEXAMETHASONE [Suspect]
     Active Substance: DEXAMETHASONE
     Indication: Hypotony maculopathy
     Dosage: UNK, RECEIVED FROM AUGUST 2021 TO JANUARY 2022 THREE BILATERAL IMPLANT INJECTIONS
     Route: 065
     Dates: start: 202108
  5. DEXAMETHASONE [Suspect]
     Active Substance: DEXAMETHASONE
     Indication: Choroidal detachment
     Dosage: UNK, RECEIVED TWO INTRAVITREAL IMPLANT INJECTIONS BILATERALLY
  6. DEXAMETHASONE [Suspect]
     Active Substance: DEXAMETHASONE
     Indication: Chorioretinal folds
  7. DIFLUPREDNATE [Suspect]
     Active Substance: DIFLUPREDNATE
     Indication: Hypotony maculopathy
     Dosage: UNK, RECEIVED BILATERALLY, DROPS
     Route: 065
     Dates: start: 2020
  8. DIFLUPREDNATE [Suspect]
     Active Substance: DIFLUPREDNATE
     Indication: Choroidal detachment
  9. DIFLUPREDNATE [Suspect]
     Active Substance: DIFLUPREDNATE
     Indication: Chorioretinal folds
  10. ATROPINE SULFATE [Suspect]
     Active Substance: ATROPINE SULFATE
     Indication: Hypotony maculopathy
     Dosage: UNK
     Route: 065
  11. ATROPINE SULFATE [Suspect]
     Active Substance: ATROPINE SULFATE
     Indication: Choroidal detachment
  12. ATROPINE SULFATE [Suspect]
     Active Substance: ATROPINE SULFATE
     Indication: Chorioretinal folds
  13. PREDNISOLONE ACETATE [Suspect]
     Active Substance: PREDNISOLONE ACETATE
     Indication: Hypotony maculopathy
     Dosage: UNK, DROPS
     Route: 065
  14. PREDNISOLONE ACETATE [Suspect]
     Active Substance: PREDNISOLONE ACETATE
     Indication: Choroidal detachment
     Dosage: UNK, DROPS INCREASED, DROPS
     Route: 065
  15. PREDNISOLONE ACETATE [Suspect]
     Active Substance: PREDNISOLONE ACETATE
     Indication: Chorioretinal folds
  16. FLUOCINOLONE ACETONIDE [Suspect]
     Active Substance: FLUOCINOLONE ACETONIDE
     Indication: Hypotony maculopathy
     Dosage: UNK, RECEIVED IMPLANT INJECTION BILATERALLY
     Route: 065
  17. FLUOCINOLONE ACETONIDE [Suspect]
     Active Substance: FLUOCINOLONE ACETONIDE
     Indication: Choroidal detachment
  18. FLUOCINOLONE ACETONIDE [Suspect]
     Active Substance: FLUOCINOLONE ACETONIDE
     Indication: Chorioretinal folds
  19. IPILIMUMAB [Concomitant]
     Active Substance: IPILIMUMAB
     Indication: Metastatic malignant melanoma
     Dosage: UNK
     Route: 065
     Dates: start: 202008, end: 202010
  20. NIVOLUMAB [Concomitant]
     Active Substance: NIVOLUMAB
     Indication: Metastatic malignant melanoma
     Dosage: UNK
     Route: 065
     Dates: start: 202008, end: 202010

REACTIONS (1)
  - Drug ineffective [Unknown]
